FAERS Safety Report 4833826-0 (Version None)
Quarter: 2005Q4

REPORT INFORMATION
  Report Type: 
  Country: None (occurrence: None)
  Receive Date: 20051110
  Receipt Date: 20050930
  Transmission Date: 20060501
  Serious: Yes (Death)
  Sender: FDA-Public Use
  Company Number: 2005AL003975

PATIENT
  Age: 19 Year
  Sex: 0

DRUGS (3)
  1. DIAZEPAM [Suspect]
  2. OXYCODONE [Suspect]
  3. COCAINE [Suspect]

REACTIONS (2)
  - INTENTIONAL DRUG MISUSE [None]
  - MULTIPLE DRUG OVERDOSE [None]
